FAERS Safety Report 9000983 (Version 1)
Quarter: 2012Q4

REPORT INFORMATION
  Report Type: Spontaneous
  Country: IT (occurrence: None)
  Receive Date: 20121226
  Receipt Date: 20121226
  Transmission Date: 20130627
  Serious: Yes (Hospitalization)
  Sender: FDA-Public Use
  Company Number: AG-2012-2052

PATIENT
  Age: 53 Year
  Sex: Male

DRUGS (1)
  1. LEUKERAN [Suspect]
     Indication: CHRONIC LYMPHOCYTIC LEUKAEMIA
     Dates: start: 20120720, end: 20120721

REACTIONS (7)
  - Haematuria [None]
  - Oliguria [None]
  - Pyrexia [None]
  - Vomiting [None]
  - Nausea [None]
  - Chills [None]
  - Chromaturia [None]
